FAERS Safety Report 5530449-5 (Version None)
Quarter: 2007Q4

REPORT INFORMATION
  Report Type: 
  Country: None (occurrence: None)
  Receive Date: 20071127
  Receipt Date: 20071115
  Transmission Date: 20080405
  Serious: Yes (Death)
  Sender: FDA-Public Use
  Company Number: GXKR2007GB09480

PATIENT
  Age: 75 Year
  Sex: Female
  Weight: 41.2 kg

DRUGS (18)
  1. ASPIRIN [Suspect]
     Indication: MYOCARDIAL ISCHAEMIA
     Dosage: 75 MG, ORAL
     Route: 048
     Dates: start: 20070831
  2. CLEXANE(ENOXAPARIN SODIUM, HEPARIN-FRACTION, SODIUM SALT) UNKNOWN [Suspect]
     Indication: MYOCARDIAL ISCHAEMIA
     Dosage: 40 MG, SUBCUTANEOUS
     Route: 058
     Dates: start: 20070901
  3. AMIAS (CANDESARTAN CILEXETIL) [Concomitant]
  4. AMLODIPINE [Concomitant]
  5. ATROVENT [Concomitant]
  6. CODEINE PHOSPHATE AND ACETAMINOPHEN [Concomitant]
  7. EZETROL (EZETIMIBE) [Concomitant]
  8. HYOSCINE HBR HYT [Concomitant]
  9. METOCLOPRAMIDE (METOCLOPRAMIDE) [Concomitant]
  10. MONTELUKAST SODIUM [Concomitant]
  11. ACETAMINOPHEN [Concomitant]
  12. PREDNISONE [Concomitant]
  13. SALBUTAMOL (SALBUTAMOL) [Concomitant]
  14. SALINA FISIOLOGICA ^GRIFOLS^ (SODIUM CHLORIDE) [Concomitant]
  15. SERC [Concomitant]
  16. SYMBICORT [Concomitant]
  17. TRAMADOL HCL [Concomitant]
  18. THEOPHYLLINE [Concomitant]

REACTIONS (1)
  - SUBDURAL HAEMORRHAGE [None]
